FAERS Safety Report 9008063 (Version 2)
Quarter: 2013Q2

REPORT INFORMATION
  Report Type: Spontaneous
  Country: US (occurrence: None)
  Receive Date: 20120517
  Receipt Date: 20120830
  Transmission Date: 20140414
  Serious: Yes (Other)
  Sender: FDA-Public Use
  Company Number: PHHY2011US48169

PATIENT
  Age: 60 Year
  Sex: Male
  Weight: 88 kg

DRUGS (7)
  1. SANDOSTATIN [Suspect]
     Indication: ACROMEGALY
     Route: 030
     Dates: start: 20101022
  2. LIPITOR (ATORVASTATIN CALCIUM) [Concomitant]
  3. AMPHETAMINE (AMFETAMINE) [Concomitant]
  4. DEXAMETH (DEXAMETHASONE) [Concomitant]
  5. RANITIDINE (RANITIDINE) [Concomitant]
  6. PLAVIX (CLOPIDOGREL SULFATE) [Concomitant]
  7. FESOTERODINE (FESOTERODINE) [Concomitant]

REACTIONS (5)
  - Diarrhoea [None]
  - Nausea [None]
  - Blood pressure systolic increased [None]
  - Nasal congestion [None]
  - Fatigue [None]
